FAERS Safety Report 11348281 (Version 1)
Quarter: 2015Q3

REPORT INFORMATION
  Report Type: Report from Study
  Country: US (occurrence: US)
  Receive Date: 20150806
  Receipt Date: 20150806
  Transmission Date: 20151125
  Serious: No
  Sender: FDA-Public Use
  Company Number: US-ABBVIE-15P-163-1352216-00

PATIENT
  Age: 71 Year
  Sex: Male
  Weight: 102.15 kg

DRUGS (3)
  1. DEPAKOTE ER [Suspect]
     Active Substance: DIVALPROEX SODIUM
     Indication: BIPOLAR DISORDER
     Dosage: 2 TABLETS IN MORNING AND 1 TABLET AT NIGHT
     Route: 048
     Dates: start: 20141229
  2. CITALOPRAM [Concomitant]
     Active Substance: CITALOPRAM HYDROBROMIDE
     Indication: PRODUCT USED FOR UNKNOWN INDICATION
  3. RISPERDAL [Concomitant]
     Active Substance: RISPERIDONE
     Indication: MENTAL DISORDER

REACTIONS (2)
  - Choking [Not Recovered/Not Resolved]
  - Dysphagia [Not Recovered/Not Resolved]

NARRATIVE: CASE EVENT DATE: 20141229
